FAERS Safety Report 24116923 (Version 4)
Quarter: 2024Q4

REPORT INFORMATION
  Report Type: Spontaneous
  Country: TR (occurrence: TR)
  Receive Date: 20240722
  Receipt Date: 20241022
  Transmission Date: 20250115
  Serious: Yes (Other)
  Sender: ROCHE
  Company Number: TR-002147023-NVSC2024TR144502

PATIENT
  Age: 50 Year
  Sex: Female

DRUGS (1)
  1. XOLAIR [Suspect]
     Active Substance: OMALIZUMAB
     Indication: Idiopathic urticaria
     Dosage: UNK, Q4W (1 IN 4 WEEKS)
     Route: 065

REACTIONS (4)
  - Idiopathic urticaria [Unknown]
  - COVID-19 [Unknown]
  - Product supply issue [Unknown]
  - Drug ineffective [Unknown]
